FAERS Safety Report 20739107 (Version 1)
Quarter: 2022Q2

REPORT INFORMATION
  Report Type: Spontaneous
  Country: NO (occurrence: NO)
  Receive Date: 20220422
  Receipt Date: 20220422
  Transmission Date: 20220721
  Serious: Yes (Hospitalization, Other)
  Sender: FDA-Public Use
  Company Number: None

PATIENT
  Age: 69 Year
  Sex: Female

DRUGS (8)
  1. CLOZAPINE [Suspect]
     Active Substance: CLOZAPINE
     Indication: Dementia with Lewy bodies
     Dosage: 12.5 MILLIGRAM (STARTED WITH 6,25 MG, THEN UP-TITRATION TO 12.4 MG AFTER FOUR DAYS.)
     Route: 048
     Dates: start: 20220217, end: 20220302
  2. CLOZAPINE [Suspect]
     Active Substance: CLOZAPINE
     Indication: Hallucination
  3. MELATONIN [Concomitant]
     Active Substance: MELATONIN
     Indication: Insomnia
     Dosage: 4 MILLIGRAM
     Route: 048
     Dates: start: 20201222
  4. OXAZEPAM [Concomitant]
     Active Substance: OXAZEPAM
     Indication: Restlessness
     Dosage: 5 MILLIGRAM (5 MG MID DAY (REGULAR/FIXED), 5 MG WHEN NEEDED UP TO 2-3 TIMES A DAY)
     Route: 048
     Dates: start: 20220302
  5. MIRTAZAPINE [Concomitant]
     Active Substance: MIRTAZAPINE
     Indication: Depression
     Dosage: 15 MILLIGRAM, PM (IN THE EVENING)
     Route: 048
     Dates: start: 20211029
  6. MIRTAZAPINE [Concomitant]
     Active Substance: MIRTAZAPINE
     Indication: Insomnia
  7. HIPREX [Concomitant]
     Active Substance: METHENAMINE HIPPURATE
     Indication: Prophylaxis urinary tract infection
     Dosage: 1 GRAM, BID
     Route: 048
     Dates: start: 20211029
  8. EXELON [Concomitant]
     Active Substance: RIVASTIGMINE TARTRATE
     Indication: Dementia with Lewy bodies
     Dosage: UNK (7,5 MG + 6 MG)
     Route: 048
     Dates: start: 2020

REACTIONS (10)
  - Hyporesponsive to stimuli [Recovered/Resolved]
  - Leukopenia [Recovered/Resolved]
  - Nausea [Recovered/Resolved]
  - Vomiting [Recovered/Resolved]
  - Diarrhoea [Recovered/Resolved]
  - Pyrexia [Recovered/Resolved]
  - C-reactive protein increased [Recovered/Resolved]
  - Leukocytosis [Recovered/Resolved]
  - Confusional state [Recovered/Resolved]
  - Fall [Recovered/Resolved]

NARRATIVE: CASE EVENT DATE: 20220224
